FAERS Safety Report 17016154 (Version 1)
Quarter: 2019Q4

REPORT INFORMATION
  Report Type: Spontaneous
  Country: US (occurrence: US)
  Receive Date: 20191003
  Receipt Date: 20191003
  Transmission Date: 20200122
  Serious: Yes (Life-Threatening, Hospitalization, Disabling, Other)
  Sender: FDA-Public Use
  Company Number: None

PATIENT
  Age: 82 Year
  Sex: Female
  Weight: 79.38 kg

DRUGS (9)
  1. OMEPRAZOLE. [Concomitant]
     Active Substance: OMEPRAZOLE
  2. MEDTRONIC SENSIA DR PACEMAKER [Concomitant]
  3. SOTALOL. [Concomitant]
     Active Substance: SOTALOL
  4. LOSARTAN POTASSIUM. [Suspect]
     Active Substance: LOSARTAN POTASSIUM
     Indication: HYPERTENSION
     Dosage: ?          QUANTITY:1 PILL;?
     Route: 048
     Dates: start: 20150809, end: 20190207
  5. METFORMIN [Concomitant]
     Active Substance: METFORMIN HYDROCHLORIDE
  6. ATORVASTATIN [Concomitant]
     Active Substance: ATORVASTATIN
  7. LOSARTAN. [Concomitant]
     Active Substance: LOSARTAN
  8. XARELTO [Concomitant]
     Active Substance: RIVAROXABAN
  9. NO DRUG NAME [Concomitant]

REACTIONS (7)
  - Hepatic cancer [None]
  - Fatigue [None]
  - Product quality issue [None]
  - Nausea [None]
  - Pain [None]
  - Asthenia [None]
  - Product contamination [None]

NARRATIVE: CASE EVENT DATE: 20181112
